FAERS Safety Report 18016112 (Version 2)
Quarter: 2020Q3

REPORT INFORMATION
  Report Type: Spontaneous
  Country: CO (occurrence: CO)
  Receive Date: 20200713
  Receipt Date: 20200730
  Transmission Date: 20201103
  Serious: Yes (Other)
  Sender: FDA-Public Use
  Company Number: CO-SHIRE-CO202022430

PATIENT

DRUGS (1)
  1. FEIBA NF [Suspect]
     Active Substance: ANTI-INHIBITOR COAGULANT COMPLEX
     Indication: FACTOR VIII DEFICIENCY
     Dosage: 1500 INTERNATIONAL UNIT, AS REQ^D
     Route: 042

REACTIONS (1)
  - Contusion [Unknown]

NARRATIVE: CASE EVENT DATE: 20200708
